FAERS Safety Report 9119996 (Version 1)
Quarter: 2013Q1

REPORT INFORMATION
  Report Type: Spontaneous
  Country: TR (occurrence: None)
  Receive Date: 20130130
  Receipt Date: 20130130
  Transmission Date: 20140127
  Serious: Yes (Other)
  Sender: FDA-Public Use
  Company Number: NSR_00794_2013

PATIENT
  Age: 13 Year
  Sex: Female

DRUGS (4)
  1. ALLOPURINOL [Suspect]
     Indication: PRODUCT USED FOR UNKNOWN INDICATION
     Dosage: (DF)?(3 WEEKS UNTIL NOT CONTINUING)
  2. TRIMETHOPRIM SULFAMETHOXAZOLE [Concomitant]
  3. CALCIUM AND AMINO ACIDS [Concomitant]
  4. PENICILLIN  /00000901/ [Concomitant]

REACTIONS (2)
  - Drug reaction with eosinophilia and systemic symptoms [None]
  - Neck pain [None]
